FAERS Safety Report 6371563-4 (Version None)
Quarter: 2009Q3

REPORT INFORMATION
  Report Type: 
  Country: None (occurrence: None)
  Receive Date: 20090923
  Receipt Date: 20071116
  Transmission Date: 20100115
  Serious: Yes (Other)
  Sender: FDA-Public Use
  Company Number: US-ASTRAZENECA-2007UW15844

PATIENT
  Age: 24632 Day
  Sex: Female
  Weight: 106.6 kg

DRUGS (23)
  1. SEROQUEL [Suspect]
     Indication: BIPOLAR DISORDER
     Route: 048
     Dates: start: 20050510, end: 20060501
  2. SEROQUEL [Suspect]
     Indication: DEPRESSION
     Route: 048
     Dates: start: 20050510, end: 20060501
  3. SEROQUEL [Suspect]
     Dosage: 25-300 MG
     Route: 048
     Dates: start: 20050502
  4. SEROQUEL [Suspect]
     Dosage: 25-300 MG
     Route: 048
     Dates: start: 20050502
  5. CLOZARIL [Concomitant]
  6. STELAZINE [Concomitant]
  7. LITHIUM [Concomitant]
     Dates: start: 19840101, end: 19850101
  8. OXAZEPAM [Concomitant]
     Dosage: 15 MG-30 MG
     Dates: start: 20010226
  9. PROPOXY/NAPS [Concomitant]
     Dosage: 100/650
     Dates: start: 20031112
  10. NABUMETONE [Concomitant]
     Dosage: 500-1000 MG
     Dates: start: 20011019
  11. ALLEGRA [Concomitant]
     Dates: start: 20020312, end: 20051221
  12. BENICAR [Concomitant]
     Route: 048
     Dates: start: 20020602
  13. PREMARIN [Concomitant]
     Dosage: 0.125-1.25 MG
     Dates: start: 20000707
  14. NORCO [Concomitant]
     Indication: BREAKTHROUGH PAIN
     Dosage: 10/325, 10/650, 5/500 MG
     Route: 048
     Dates: start: 20010410
  15. LIPITOR [Concomitant]
     Dosage: 20-40 MG
     Route: 048
     Dates: start: 20000707
  16. COUMADIN [Concomitant]
     Dosage: 20-40 MG
     Route: 048
     Dates: start: 20000707
  17. ALPRAZOLAM [Concomitant]
     Dosage: 0.25-0.5 MG
     Dates: start: 20010410
  18. K-DUR [Concomitant]
     Dates: start: 20000707
  19. LEXAPRO [Concomitant]
     Dosage: 10-20 MG
     Dates: start: 20030602
  20. LASIX [Concomitant]
     Dosage: 40-80 MG
     Route: 048
     Dates: start: 20000707
  21. PRILOSEC [Concomitant]
     Dosage: 10-20 MG
     Route: 048
     Dates: start: 20020329
  22. NEURONTIN [Concomitant]
     Dosage: 300-600 MG
     Route: 048
     Dates: start: 20040602
  23. ZANAFLEX [Concomitant]
     Dosage: 4 MG EVERY 4-6 HOUR
     Dates: start: 20020312

REACTIONS (3)
  - OBESITY [None]
  - TYPE 2 DIABETES MELLITUS [None]
  - VERTIGO [None]
